FAERS Safety Report 25591924 (Version 1)
Quarter: 2025Q3

REPORT INFORMATION
  Report Type: Spontaneous
  Country: EU (occurrence: EU)
  Receive Date: 20250722
  Receipt Date: 20250722
  Transmission Date: 20251020
  Serious: Yes (Hospitalization, Other)
  Sender: B. BRAUN MEDICAL INC.
  Company Number: None

PATIENT
  Age: 36 Year
  Sex: Male

DRUGS (9)
  1. ACETAMINOPHEN [Suspect]
     Active Substance: ACETAMINOPHEN
  2. IMODIUM [Suspect]
     Active Substance: LOPERAMIDE HYDROCHLORIDE
  3. CODEINE [Suspect]
     Active Substance: CODEINE
  4. Natriumklorid Abcur 500 mg Filmdragerad tablett [Concomitant]
     Dosage: 3000 MG
     Dates: start: 20220824
  5. Vi-Siblin 610 mg/g Granulat i dosp?se [Concomitant]
     Dates: start: 20220928
  6. FOLIC ACID [Concomitant]
     Active Substance: FOLIC ACID
     Dates: start: 20220929
  7. OMEPRAZOLE [Concomitant]
     Active Substance: OMEPRAZOLE
     Dates: start: 20220827
  8. Betolvex [Concomitant]
     Dates: start: 20220929
  9. Glucose-Na-K Baxter 50 mg/ml [Concomitant]

REACTIONS (6)
  - Toxicity to various agents [Recovering/Resolving]
  - Intentional overdose [Recovering/Resolving]
  - Hypokalaemia [Recovering/Resolving]
  - Metabolic acidosis [Recovering/Resolving]
  - Suicide attempt [Recovering/Resolving]
  - Vomiting [Recovering/Resolving]

NARRATIVE: CASE EVENT DATE: 20221012
